FAERS Safety Report 14569477 (Version 2)
Quarter: 2018Q1

REPORT INFORMATION
  Report Type: Spontaneous
  Country: CO (occurrence: CO)
  Receive Date: 20180224
  Receipt Date: 20180226
  Transmission Date: 20180509
  Serious: Yes (Death, Hospitalization)
  Sender: FDA-Public Use
  Company Number: CO-ROCHE-2076225

PATIENT
  Age: 51 Year
  Sex: Female

DRUGS (2)
  1. METALYSE [Suspect]
     Active Substance: TENECTEPLASE
     Indication: ACUTE MYOCARDIAL INFARCTION
  2. METALYSE [Suspect]
     Active Substance: TENECTEPLASE
     Indication: THROMBOLYSIS
     Route: 042
     Dates: start: 20180209, end: 20180209

REACTIONS (1)
  - Death [Fatal]

NARRATIVE: CASE EVENT DATE: 20180209
